FAERS Safety Report 25375457 (Version 1)
Quarter: 2025Q2

REPORT INFORMATION
  Report Type: Spontaneous
  Country: AU (occurrence: AU)
  Receive Date: 20250529
  Receipt Date: 20250529
  Transmission Date: 20250717
  Serious: Yes (Hospitalization)
  Sender: ANI
  Company Number: AU-ANIPHARMA-2025-AU-000087

PATIENT
  Age: 44 Year
  Sex: Male

DRUGS (2)
  1. CANDESARTAN [Suspect]
     Active Substance: CANDESARTAN
     Indication: Right ventricular dysfunction
  2. ENTRESTO [Suspect]
     Active Substance: SACUBITRIL\VALSARTAN
     Dates: start: 20221019

REACTIONS (4)
  - Condition aggravated [Unknown]
  - Off label use [Unknown]
  - Contraindicated product administered [Unknown]
  - Right ventricular dysfunction [Unknown]
